FAERS Safety Report 6623922-X (Version None)
Quarter: 2010Q1

REPORT INFORMATION
  Report Type: 
  Country: None (occurrence: None)
  Receive Date: 20100305
  Receipt Date: 20100225
  Transmission Date: 20100710
  Serious: Yes (Other)
  Sender: FDA-Public Use
  Company Number: 10TR001267

PATIENT
  Age: 40 Year
  Sex: Female

DRUGS (8)
  1. PAROXETINE HCL [Suspect]
     Indication: DRUG USE FOR UNKNOWN INDICATION
  2. FENTANYL CITRATE [Suspect]
     Indication: DRUG USE FOR UNKNOWN INDICATION
     Dosage: 100 UG, INTRAVENOUS
     Route: 042
  3. THIOPENTAL SODIUM [Concomitant]
  4. VECURONIUM BROMIDE [Suspect]
  5. SEVOFLURANE [Concomitant]
  6. NEOSTIGMINE [Suspect]
  7. ATROPINE [Concomitant]
  8. DICLOFENAC [Concomitant]

REACTIONS (9)
  - BLOOD PRESSURE FLUCTUATION [None]
  - CHOLELITHIASIS [None]
  - CONFUSIONAL STATE [None]
  - DELAYED RECOVERY FROM ANAESTHESIA [None]
  - DRUG INTERACTION [None]
  - HAEMODYNAMIC INSTABILITY [None]
  - NYSTAGMUS [None]
  - PUPILS UNEQUAL [None]
  - SEROTONIN SYNDROME [None]
